FAERS Safety Report 5424063-X (Version None)
Quarter: 2007Q3

REPORT INFORMATION
  Report Type: 
  Country: None (occurrence: None)
  Receive Date: 20070823
  Receipt Date: 20070815
  Transmission Date: 20080115
  Serious: Yes (Other)
  Sender: FDA-Public Use
  Company Number: DE-SHR-DE-2007-030812

PATIENT
  Sex: Female

DRUGS (1)
  1. PETIBELLE 30 (21) [Suspect]
     Route: 048

REACTIONS (1)
  - THROMBOCYTOPENIA [None]
